FAERS Safety Report 25717740 (Version 1)
Quarter: 2025Q3

REPORT INFORMATION
  Report Type: Spontaneous
  Country: GB (occurrence: GB)
  Receive Date: 20250822
  Receipt Date: 20250822
  Transmission Date: 20251020
  Serious: Yes (Other)
  Sender: INSUD PHARMA
  Company Number: GB-MHRA-TPP58615513C11176918YC1755252142286

PATIENT
  Age: 78 Year
  Sex: Female
  Weight: 98 kg

DRUGS (11)
  1. METRONIDAZOLE [Suspect]
     Active Substance: METRONIDAZOLE
     Indication: Ill-defined disorder
     Route: 065
  2. SOOLANTRA [Concomitant]
     Active Substance: IVERMECTIN
     Indication: Ill-defined disorder
     Route: 065
     Dates: start: 20250522, end: 20250621
  3. NYSTATIN [Concomitant]
     Active Substance: NYSTATIN
     Indication: Ill-defined disorder
     Route: 065
     Dates: start: 20250528, end: 20250604
  4. ROZEX (METRONIDAZOLE) [Concomitant]
     Active Substance: METRONIDAZOLE
     Indication: Ill-defined disorder
     Route: 065
     Dates: start: 20250619, end: 20250717
  5. FOLIC ACID [Concomitant]
     Active Substance: FOLIC ACID
     Indication: Ill-defined disorder
     Route: 065
     Dates: start: 20161128, end: 20250728
  6. TELMISARTAN [Concomitant]
     Active Substance: TELMISARTAN
     Indication: Ill-defined disorder
     Dosage: ONE TO BE TAKEN EACH DAY
     Route: 065
     Dates: start: 20161128, end: 20250728
  7. CLINITAS SOOTHE MULTI [Concomitant]
     Indication: Ill-defined disorder
     Dosage: 4 TIMES DAILY
     Route: 065
     Dates: start: 20180126, end: 20250728
  8. BISOPROLOL [Concomitant]
     Active Substance: BISOPROLOL
     Indication: Ill-defined disorder
     Dosage: TAKE ONE EACH MORNING
     Route: 065
     Dates: start: 20180618, end: 20250728
  9. EDOXABAN [Concomitant]
     Active Substance: EDOXABAN
     Indication: Ill-defined disorder
     Dosage: ONE TO BE TAKEN DAILY
     Route: 065
     Dates: start: 20221108, end: 20250728
  10. METHOTREXATE [Concomitant]
     Active Substance: METHOTREXATE
     Indication: Ill-defined disorder
     Dosage: 25MG (TEN TABLETS) ONCE A WEEK ON THE SAME DAY ...
     Route: 065
     Dates: start: 20230124, end: 20250728
  11. BETAMETHASONE DIPROPIONATE [Concomitant]
     Active Substance: BETAMETHASONE DIPROPIONATE
     Indication: Ill-defined disorder
     Route: 065
     Dates: start: 20240903, end: 20250728

REACTIONS (1)
  - Skin exfoliation [Recovered/Resolved]
